FAERS Safety Report 18921309 (Version 2)
Quarter: 2021Q3

REPORT INFORMATION
  Report Type: Spontaneous
  Country: US (occurrence: US)
  Receive Date: 20210222
  Receipt Date: 20210730
  Transmission Date: 20211014
  Serious: Yes (Other)
  Sender: FDA-Public Use
  Company Number: US-GLAXOSMITHKLINE-US2021GSK031746

PATIENT
  Sex: Male

DRUGS (12)
  1. ZANTAC [Suspect]
     Active Substance: RANITIDINE HYDROCHLORIDE
     Indication: DYSPEPSIA
  2. ZANTAC [Suspect]
     Active Substance: RANITIDINE HYDROCHLORIDE
     Indication: DYSPEPSIA
     Dosage: 75 MG
     Route: 065
     Dates: start: 1999, end: 2015
  3. ZANTAC [Suspect]
     Active Substance: RANITIDINE HYDROCHLORIDE
     Indication: DYSPEPSIA
  4. RANITIDINE. [Suspect]
     Active Substance: RANITIDINE
     Indication: DYSPEPSIA
  5. ZANTAC [Suspect]
     Active Substance: RANITIDINE HYDROCHLORIDE
     Indication: DYSPEPSIA
     Dosage: 150 MG, I TOOK THEM FROM 1/WK TO 3?4/WK.  OTHER TIMES I COULD GO 2?3 WEEKS WITHOUT NEEDING ONE.
     Route: 065
     Dates: start: 198701, end: 201510
  6. RANITIDINE. [Suspect]
     Active Substance: RANITIDINE
     Indication: DYSPEPSIA
  7. ZANTAC [Suspect]
     Active Substance: RANITIDINE HYDROCHLORIDE
     Indication: DYSPEPSIA
     Dosage: 150 MG, I TOOK THEM FROM 1/WK TO 3?4/WK.  OTHER TIMES I COULD GO 2?3 WEEKS WITHOUT NEEDING ONE.
     Route: 065
     Dates: start: 198701, end: 201510
  8. RANITIDINE. [Suspect]
     Active Substance: RANITIDINE
     Indication: DYSPEPSIA
  9. RANITIDINE. [Suspect]
     Active Substance: RANITIDINE
     Indication: DYSPEPSIA
  10. ZANTAC [Suspect]
     Active Substance: RANITIDINE HYDROCHLORIDE
     Indication: DYSPEPSIA
  11. RANITIDINE. [Suspect]
     Active Substance: RANITIDINE
     Indication: DYSPEPSIA
     Dosage: 150 MG, I TOOK THEM 1/WK TO 3?4/WK. OTHER TIMES I COULD GO 2?3 WEEKS WITHOUT NEEDING ONE.
     Route: 065
     Dates: start: 199801, end: 201510
  12. RANITIDINE. [Suspect]
     Active Substance: RANITIDINE
     Indication: DYSPEPSIA
     Dosage: 150 MG, I TOOK THEM 1/WK TO 3?4/WK. OTHER TIMES I COULD GO 2?3 WEEKS WITHOUT NEEDING ONE.
     Route: 065
     Dates: start: 199801, end: 201510

REACTIONS (1)
  - Prostate cancer [Unknown]
